FAERS Safety Report 6269106-9 (Version None)
Quarter: 2009Q3

REPORT INFORMATION
  Report Type: 
  Country: None (occurrence: None)
  Receive Date: 20090715
  Receipt Date: 20090708
  Transmission Date: 20100115
  Serious: Yes (Hospitalization)
  Sender: FDA-Public Use
  Company Number: FR-AMGEN-US355293

PATIENT
  Sex: Female

DRUGS (4)
  1. ENBREL [Suspect]
     Indication: RHEUMATOID ARTHRITIS
     Dosage: 50 MG TOTAL WEEKLY
     Route: 058
     Dates: start: 20050301, end: 20090217
  2. HUMIRA [Suspect]
     Indication: RHEUMATOID ARTHRITIS
     Dosage: UNKNOWN
     Route: 058
     Dates: start: 20090422, end: 20090507
  3. BISOPROLOL FUMARATE [Concomitant]
     Indication: HYPERTENSION
     Dosage: UNKNOWN
     Route: 048
  4. LEVOTHYROX [Concomitant]
     Indication: HYPOTHYROIDISM
     Dosage: UNKNOWN
     Route: 048

REACTIONS (5)
  - EYE OEDEMA [None]
  - FACE OEDEMA [None]
  - MANTLE CELL LYMPHOMA [None]
  - MYALGIA [None]
  - RASH ERYTHEMATOUS [None]
